FAERS Safety Report 7011025-4 (Version None)
Quarter: 2010Q3

REPORT INFORMATION
  Report Type: 
  Country: None (occurrence: None)
  Receive Date: 20100923
  Receipt Date: 20081022
  Transmission Date: 20110219
  Serious: No
  Sender: FDA-Public Use
  Company Number: US-WYE-H06528608

PATIENT
  Age: 65 Year
  Sex: Female
  Weight: 80.81 kg

DRUGS (7)
  1. EFFEXOR XR [Suspect]
     Indication: DEPRESSION
     Route: 048
     Dates: start: 20080601, end: 20080101
  2. EFFEXOR XR [Suspect]
     Route: 048
     Dates: start: 20080101, end: 20081013
  3. LOVAZA [Concomitant]
  4. METFORMIN [Concomitant]
  5. DIOVAN [Concomitant]
  6. ASMANEX TWISTHALER [Concomitant]
  7. SINGULAIR [Concomitant]

REACTIONS (11)
  - DIZZINESS [None]
  - DRUG WITHDRAWAL SYNDROME [None]
  - DYSPHONIA [None]
  - EMOTIONAL DISORDER [None]
  - FEELING ABNORMAL [None]
  - FEELING HOT [None]
  - HEADACHE [None]
  - HOT FLUSH [None]
  - INSOMNIA [None]
  - TINNITUS [None]
  - VISION BLURRED [None]
